FAERS Safety Report 21035215 (Version 2)
Quarter: 2022Q3

REPORT INFORMATION
  Report Type: Spontaneous
  Country: MA (occurrence: None)
  Receive Date: 20220701
  Receipt Date: 20220706
  Transmission Date: 20221026
  Serious: Yes (Other)
  Sender: FDA-Public Use
  Company Number: 2022A241974

PATIENT
  Sex: Female
  Weight: 2.7 kg

DRUGS (5)
  1. OMEPRAZOLE [Suspect]
     Active Substance: OMEPRAZOLE
     Route: 064
  2. SALINE [Suspect]
     Active Substance: SODIUM CHLORIDE
     Dosage: REHYDRATION USING 500 CM3 OF NORMAL SALINE
     Route: 064
  3. PHLOROGLUCINOL [Suspect]
     Active Substance: PHLOROGLUCINOL
     Dosage: 80 MG OF PHLOROGLUCINOL FOUR TIMES A DAY
     Route: 064
  4. LOPERAMIDE [Suspect]
     Active Substance: LOPERAMIDE
     Dosage: STARTING WITH 2 CAPSULES, THEN 1 ADDITIONAL CAPSULE AFTER EACH LIQUID STOOL WITHOUT EXCEEDING 8 C...
     Route: 064
  5. AMOXICILLIN [Suspect]
     Active Substance: AMOXICILLIN
     Route: 064

REACTIONS (2)
  - Foetal exposure during pregnancy [Recovered/Resolved]
  - Bradycardia foetal [Recovered/Resolved]
